FAERS Safety Report 10017792 (Version 1)
Quarter: 2014Q1

REPORT INFORMATION
  Report Type: Spontaneous
  Country: US (occurrence: US)
  Receive Date: 20140318
  Receipt Date: 20140318
  Transmission Date: 20141002
  Serious: No
  Sender: FDA-Public Use
  Company Number: US-BRISTOL-MYERS SQUIBB COMPANY-18849885

PATIENT
  Age: 75 Year
  Sex: Male

DRUGS (1)
  1. ERBITUX SOLN FOR INF [Suspect]
     Dates: start: 201102

REACTIONS (4)
  - Acne [Unknown]
  - Paraesthesia [Unknown]
  - Skin ulcer [Unknown]
  - Insomnia [Unknown]
